FAERS Safety Report 7475246-9 (Version None)
Quarter: 2011Q2

REPORT INFORMATION
  Report Type: 
  Country: None (occurrence: None)
  Receive Date: 20110512
  Receipt Date: 20110502
  Transmission Date: 20111010
  Serious: Yes (Hospitalization, Other)
  Sender: FDA-Public Use
  Company Number: DE-NOVOPROD-324170

PATIENT
  Sex: Male

DRUGS (7)
  1. JANUMET [Concomitant]
     Dosage: 2 UNK, QD
  2. CONCOR 5 PLUS [Concomitant]
     Dosage: 1 UNK, QD
  3. ASPIRIN [Concomitant]
  4. VICTOZA [Suspect]
     Dosage: 1.2 MG, QD
     Route: 058
     Dates: start: 20101210
  5. VICTOZA [Suspect]
     Indication: TYPE 2 DIABETES MELLITUS
     Dosage: 0.6 MG, QD
     Route: 058
     Dates: start: 20100601
  6. SIMVA [Concomitant]
  7. DIOVAN [Concomitant]
     Dosage: 1 UNK, QD

REACTIONS (2)
  - PANCREATITIS [None]
  - BLOOD GLUCOSE INCREASED [None]
